FAERS Safety Report 7201184-2 (Version None)
Quarter: 2010Q4

REPORT INFORMATION
  Report Type: 
  Country: None (occurrence: None)
  Receive Date: 20101229
  Receipt Date: 20101222
  Transmission Date: 20110411
  Serious: Yes (Death, Other)
  Sender: FDA-Public Use
  Company Number: US-CELGENEUS-163-21880-10110953

PATIENT
  Sex: Female

DRUGS (11)
  1. REVLIMID [Suspect]
     Indication: MULTIPLE MYELOMA
     Route: 048
     Dates: start: 20100518, end: 20100928
  2. REVLIMID [Suspect]
     Route: 048
     Dates: start: 20090401
  3. LEXAPRO [Concomitant]
     Indication: DEPRESSION
     Route: 065
  4. ALPRAZOLAM [Concomitant]
     Indication: ANXIETY
     Route: 065
  5. CITRACAL PLUS [Concomitant]
     Indication: VITAMIN SUPPLEMENTATION
     Route: 065
     Dates: start: 20090601
  6. VITAMIN D [Concomitant]
     Indication: VITAMIN SUPPLEMENTATION
     Dosage: 1000 UNITS
     Route: 065
  7. BUPROPION HCL [Concomitant]
     Indication: DEPRESSION
     Route: 065
     Dates: start: 20090701
  8. KLOR-CON [Concomitant]
     Route: 065
     Dates: start: 20100301
  9. ONDANSETRON [Concomitant]
     Indication: NAUSEA
     Route: 065
     Dates: start: 20100901
  10. ALKERAN [Concomitant]
     Indication: MULTIPLE MYELOMA
     Route: 065
     Dates: start: 20100928, end: 20101028
  11. PREDNISONE [Concomitant]
     Indication: MULTIPLE MYELOMA
     Route: 065
     Dates: start: 20100928, end: 20101028

REACTIONS (7)
  - ASTHENIA [None]
  - DEATH [None]
  - DECREASED APPETITE [None]
  - FATIGUE [None]
  - LETHARGY [None]
  - PANCYTOPENIA [None]
  - WEIGHT DECREASED [None]
